FAERS Safety Report 16490747 (Version 3)
Quarter: 2019Q3

REPORT INFORMATION
  Report Type: Spontaneous
  Country: US (occurrence: US)
  Receive Date: 20190628
  Receipt Date: 20190829
  Transmission Date: 20191004
  Serious: Yes (Other)
  Sender: FDA-Public Use
  Company Number: US-INDIVIOR LIMITED-INDV-119843-2019

PATIENT
  Sex: Male

DRUGS (2)
  1. SUBLOCADE [Suspect]
     Active Substance: BUPRENORPHINE
     Indication: DRUG DEPENDENCE
     Dosage: 100 MILLIGRAM, QMO
     Route: 065
     Dates: start: 201906, end: 201906
  2. SUBLOCADE [Suspect]
     Active Substance: BUPRENORPHINE
     Indication: DRUG DEPENDENCE
     Dosage: 300 MILLIGRAM, QMO
     Route: 058
     Dates: start: 20190522, end: 201906

REACTIONS (4)
  - Injection site necrosis [Not Recovered/Not Resolved]
  - Injection site extravasation [Recovered/Resolved]
  - Drug delivery system removal [Recovered/Resolved]
  - Injection site abscess [Unknown]

NARRATIVE: CASE EVENT DATE: 201905
